FAERS Safety Report 6661315-X (Version None)
Quarter: 2010Q1

REPORT INFORMATION
  Report Type: 
  Country: None (occurrence: None)
  Receive Date: 20100331
  Receipt Date: 20100318
  Transmission Date: 20100710
  Serious: Yes (Other)
  Sender: FDA-Public Use
  Company Number: PHHY2010US17157

PATIENT
  Sex: Female

DRUGS (4)
  1. TRILEPTAL [Suspect]
     Dosage: UNK
     Dates: start: 20030101
  2. TRILEPTAL [Suspect]
     Dosage: UNK
     Dates: start: 20080101
  3. INFLUENZA VIRUS VACCINE - PANDEMIC INN (NVD) [Suspect]
     Indication: IMMUNISATION
     Dates: start: 20091001, end: 20091001
  4. LAMICTAL CD [Suspect]

REACTIONS (5)
  - DIZZINESS [None]
  - EXCESSIVE EYE BLINKING [None]
  - FATIGUE [None]
  - SOMNOLENCE [None]
  - TIC [None]
